FAERS Safety Report 4383900-0 (Version None)
Quarter: 2004Q2

REPORT INFORMATION
  Report Type: 
  Country: None (occurrence: None)
  Receive Date: 20040623
  Receipt Date: 20040623
  Transmission Date: 20050107
  Serious: No
  Sender: FDA-Public Use
  Company Number: None

PATIENT
  Sex: Female
  Weight: 55.7924 kg

DRUGS (1)
  1. ALESSE [Suspect]

REACTIONS (3)
  - HAEMORRHAGE [None]
  - MENOMETRORRHAGIA [None]
  - PHARMACEUTICAL PRODUCT COMPLAINT [None]
